FAERS Safety Report 13256123 (Version 3)
Quarter: 2017Q1

REPORT INFORMATION
  Report Type: Spontaneous
  Country: US (occurrence: US)
  Receive Date: 20170221
  Receipt Date: 20170302
  Transmission Date: 20170428
  Serious: Yes (Hospitalization, Other)
  Sender: FDA-Public Use
  Company Number: US-GLAXOSMITHKLINE-US2017023506

PATIENT
  Age: 65 Year
  Sex: Female

DRUGS (4)
  1. BENLYSTA [Suspect]
     Active Substance: BELIMUMAB
     Indication: SYSTEMIC LUPUS ERYTHEMATOSUS
     Dosage: UNK
     Route: 042
     Dates: start: 20170127, end: 20170127
  2. HYDROXYCHLOROQUINE [Concomitant]
     Active Substance: HYDROXYCHLOROQUINE
  3. CELEXA [Concomitant]
     Active Substance: CITALOPRAM HYDROBROMIDE
  4. PRAVASTATIN. [Concomitant]
     Active Substance: PRAVASTATIN

REACTIONS (6)
  - Concussion [Unknown]
  - Progressive multifocal leukoencephalopathy [Unknown]
  - Memory impairment [Recovered/Resolved]
  - Central nervous system lupus [Unknown]
  - Amnesia [Not Recovered/Not Resolved]
  - Transient global amnesia [Not Recovered/Not Resolved]

NARRATIVE: CASE EVENT DATE: 201702
